FAERS Safety Report 6665355-6 (Version None)
Quarter: 2010Q1

REPORT INFORMATION
  Report Type: 
  Country: None (occurrence: None)
  Receive Date: 20100331
  Receipt Date: 20100319
  Transmission Date: 20100710
  Serious: Yes (Hospitalization)
  Sender: FDA-Public Use
  Company Number: 2009AL005371

PATIENT
  Age: 52 Year
  Sex: Female
  Weight: 93 kg

DRUGS (7)
  1. TRAMADOL HYDROCHLORIDE [Suspect]
     Indication: INSOMNIA
     Dosage: 50 MG;HS;PO
     Route: 048
     Dates: start: 20090801
  2. TRAMADOL HYDROCHLORIDE [Suspect]
     Indication: PAIN
     Dosage: 50 MG;HS;PO
     Route: 048
     Dates: start: 20090801
  3. REBIF [Concomitant]
  4. NEURONTIN [Concomitant]
  5. KLONOPIN [Concomitant]
  6. EFFEXOR [Concomitant]
  7. TRAZODONE [Concomitant]

REACTIONS (8)
  - CONVULSION [None]
  - DRUG WITHDRAWAL SYNDROME [None]
  - FEELING OF BODY TEMPERATURE CHANGE [None]
  - LOSS OF CONSCIOUSNESS [None]
  - ORAL DISORDER [None]
  - OVERDOSE [None]
  - RETCHING [None]
  - TONGUE BITING [None]
